FAERS Safety Report 9748963 (Version 1)
Quarter: 2013Q4

REPORT INFORMATION
  Report Type: Spontaneous
  Country: FR (occurrence: FR)
  Receive Date: 20131212
  Receipt Date: 20131212
  Transmission Date: 20140711
  Serious: Yes (Hospitalization, Other)
  Sender: FDA-Public Use
  Company Number: FR-B.I. PHARMACEUTICALS,INC./RIDGEFIELD-2013-BI-41043FF

PATIENT
  Sex: Male

DRUGS (2)
  1. PRADAXA [Suspect]
     Indication: SUICIDE ATTEMPT
     Dosage: 30 TO 60 CAPSULES
     Route: 048
  2. PSYCHOTROPIC DRUGS (UNSPECIFIED) [Suspect]
     Indication: SUICIDE ATTEMPT
     Route: 048

REACTIONS (2)
  - Suicide attempt [Recovered/Resolved]
  - Coma [Recovered/Resolved]
